FAERS Safety Report 4752389-1 (Version None)
Quarter: 2005Q3

REPORT INFORMATION
  Report Type: 
  Country: None (occurrence: None)
  Receive Date: 20050823
  Receipt Date: 20050810
  Transmission Date: 20060218
  Serious: Yes (Death)
  Sender: FDA-Public Use
  Company Number: 2005114527

PATIENT
  Age: 75 Year
  Sex: Female

DRUGS (2)
  1. VFEND [Suspect]
     Indication: ILL-DEFINED DISORDER
     Dosage: SEE IMAGE, INTRAVENOUS
     Route: 042
     Dates: start: 20050715, end: 20050715
  2. VFEND [Suspect]
     Indication: ILL-DEFINED DISORDER
     Dosage: SEE IMAGE, INTRAVENOUS
     Route: 042
     Dates: start: 20050716, end: 20050802

REACTIONS (3)
  - ACUTE MYELOID LEUKAEMIA [None]
  - CONDITION AGGRAVATED [None]
  - PLEURISY [None]
